FAERS Safety Report 24634710 (Version 2)
Quarter: 2024Q4

REPORT INFORMATION
  Report Type: Spontaneous
  Country: SK (occurrence: SK)
  Receive Date: 20241119
  Receipt Date: 20241216
  Transmission Date: 20250115
  Serious: Yes (Hospitalization)
  Sender: ABBVIE
  Company Number: SK-ABBVIE-6005203

PATIENT
  Age: 30 Year
  Sex: Male
  Weight: 89 kg

DRUGS (2)
  1. UPADACITINIB [Suspect]
     Active Substance: UPADACITINIB
     Indication: Dermatitis atopic
     Dosage: FORM STRENGTH: 30 MILLIGRAM
     Route: 048
     Dates: start: 20190408, end: 202406
  2. UPADACITINIB [Suspect]
     Active Substance: UPADACITINIB
     Indication: Dermatitis atopic
     Dosage: FIRST ADMIN DATE: 2024?FORM STRENGTH: 15 MILLIGRAM
     Route: 048
     Dates: end: 20240618

REACTIONS (5)
  - Blister [Recovered/Resolved]
  - Ophthalmic herpes simplex [Unknown]
  - Periorbital swelling [Unknown]
  - Herpes zoster [Unknown]
  - Swelling [Unknown]

NARRATIVE: CASE EVENT DATE: 20240618
